FAERS Safety Report 9333205 (Version 2)
Quarter: 2013Q3

REPORT INFORMATION
  Report Type: Spontaneous
  Country: TW (occurrence: TW)
  Receive Date: 20130606
  Receipt Date: 20130719
  Transmission Date: 20140515
  Serious: Yes (Hospitalization)
  Sender: FDA-Public Use
  Company Number: TW-ABBOTT-13P-153-1096618-00

PATIENT
  Sex: Female
  Weight: 100 kg

DRUGS (8)
  1. HUMIRA [Suspect]
     Indication: RHEUMATOID ARTHRITIS
     Route: 058
  2. HUMIRA [Suspect]
     Route: 058
     Dates: start: 20130618
  3. BENZONATE [Concomitant]
     Route: 048
     Dates: start: 20130528
  4. CYPROHEPTADINE [Concomitant]
     Route: 048
     Dates: start: 20130528
  5. ETROICCOXIB [Concomitant]
     Dosage: 1.5#, 1 IN 1 DAY
     Dates: start: 20130528
  6. METHOTREXATE [Concomitant]
     Route: 048
     Dates: start: 20130528
  7. HYDROXYCHLOROQUINE [Concomitant]
     Route: 048
     Dates: start: 20130528
  8. PREDNISOLONE [Concomitant]
     Route: 048
     Dates: start: 20130528

REACTIONS (7)
  - Oedema [Recovered/Resolved]
  - Pain [Recovered/Resolved]
  - Haematoma [Recovered/Resolved]
  - Local swelling [Recovered/Resolved]
  - Gait disturbance [Recovered/Resolved]
  - Mobility decreased [Recovered/Resolved]
  - Nodule [Recovered/Resolved]
